FAERS Safety Report 22390023 (Version 5)
Quarter: 2025Q2

REPORT INFORMATION
  Report Type: Spontaneous
  Country: ES (occurrence: ES)
  Receive Date: 20230531
  Receipt Date: 20250527
  Transmission Date: 20250716
  Serious: Yes (Hospitalization, Other)
  Sender: MYLAN
  Company Number: None

PATIENT
  Age: 41 Year
  Sex: Male

DRUGS (36)
  1. PANTOPRAZOLE [Suspect]
     Active Substance: PANTOPRAZOLE
     Indication: Gastrooesophageal reflux disease
     Dosage: 40 MILLIGRAM, QD (DURING 6 YEARS), 1-0-0
     Dates: start: 20160422, end: 20220315
  2. PANTOPRAZOLE [Suspect]
     Active Substance: PANTOPRAZOLE
     Indication: Epilepsy
     Dosage: 40 MILLIGRAM, QD (DURING 6 YEARS), 1-0-0
     Route: 048
     Dates: start: 20160422, end: 20220315
  3. PANTOPRAZOLE [Suspect]
     Active Substance: PANTOPRAZOLE
     Dosage: 40 MILLIGRAM, QD (DURING 6 YEARS), 1-0-0
     Route: 048
     Dates: start: 20160422, end: 20220315
  4. PANTOPRAZOLE [Suspect]
     Active Substance: PANTOPRAZOLE
     Dosage: 40 MILLIGRAM, QD (DURING 6 YEARS), 1-0-0
     Dates: start: 20160422, end: 20220315
  5. LEVETIRACETAM [Suspect]
     Active Substance: LEVETIRACETAM
     Indication: Epilepsy
  6. LEVETIRACETAM [Suspect]
     Active Substance: LEVETIRACETAM
     Route: 065
  7. LEVETIRACETAM [Suspect]
     Active Substance: LEVETIRACETAM
     Route: 065
  8. LEVETIRACETAM [Suspect]
     Active Substance: LEVETIRACETAM
  9. ESLICARBAZEPINE [Suspect]
     Active Substance: ESLICARBAZEPINE
     Indication: Epilepsy
  10. ESLICARBAZEPINE [Suspect]
     Active Substance: ESLICARBAZEPINE
     Route: 065
  11. ESLICARBAZEPINE [Suspect]
     Active Substance: ESLICARBAZEPINE
     Route: 065
  12. ESLICARBAZEPINE [Suspect]
     Active Substance: ESLICARBAZEPINE
  13. LACOSAMIDE [Suspect]
     Active Substance: LACOSAMIDE
     Indication: Epilepsy
     Dosage: 200 MILLIGRAM, Q8H (200 MG 1-1-1) (600 MILLIGRAM, QD)
     Dates: start: 20180705, end: 20230309
  14. LACOSAMIDE [Suspect]
     Active Substance: LACOSAMIDE
     Dosage: 200 MILLIGRAM, Q8H (200 MG 1-1-1) (600 MILLIGRAM, QD)
     Route: 048
     Dates: start: 20180705, end: 20230309
  15. LACOSAMIDE [Suspect]
     Active Substance: LACOSAMIDE
     Dosage: 200 MILLIGRAM, Q8H (200 MG 1-1-1) (600 MILLIGRAM, QD)
     Route: 048
     Dates: start: 20180705, end: 20230309
  16. LACOSAMIDE [Suspect]
     Active Substance: LACOSAMIDE
     Dosage: 200 MILLIGRAM, Q8H (200 MG 1-1-1) (600 MILLIGRAM, QD)
     Dates: start: 20180705, end: 20230309
  17. VALPROIC ACID [Suspect]
     Active Substance: VALPROIC ACID
     Indication: Epilepsy
     Dosage: 2000 MILLIGRAM, QD
  18. VALPROIC ACID [Suspect]
     Active Substance: VALPROIC ACID
     Dosage: 2000 MILLIGRAM, QD
     Route: 065
  19. VALPROIC ACID [Suspect]
     Active Substance: VALPROIC ACID
     Dosage: 2000 MILLIGRAM, QD
     Route: 065
  20. VALPROIC ACID [Suspect]
     Active Substance: VALPROIC ACID
     Dosage: 2000 MILLIGRAM, QD
  21. VALPROIC ACID [Suspect]
     Active Substance: VALPROIC ACID
     Dosage: 2400 MILLIGRAM, QD (DURING 6 YEARS)
     Dates: start: 20160504
  22. VALPROIC ACID [Suspect]
     Active Substance: VALPROIC ACID
     Dosage: 2400 MILLIGRAM, QD (DURING 6 YEARS)
     Route: 048
     Dates: start: 20160504
  23. VALPROIC ACID [Suspect]
     Active Substance: VALPROIC ACID
     Dosage: 2400 MILLIGRAM, QD (DURING 6 YEARS)
     Dates: start: 20160504
  24. VALPROIC ACID [Suspect]
     Active Substance: VALPROIC ACID
     Dosage: 2400 MILLIGRAM, QD (DURING 6 YEARS)
     Route: 048
     Dates: start: 20160504
  25. VALPROIC ACID [Suspect]
     Active Substance: VALPROIC ACID
     Route: 065
  26. VALPROIC ACID [Suspect]
     Active Substance: VALPROIC ACID
     Route: 065
  27. VALPROIC ACID [Suspect]
     Active Substance: VALPROIC ACID
  28. VALPROIC ACID [Suspect]
     Active Substance: VALPROIC ACID
  29. CLOBAZAM [Concomitant]
     Active Substance: CLOBAZAM
     Indication: Epilepsy
     Dosage: 30 MILLIGRAM, QD (DURING 2 YEARS)
  30. CLOBAZAM [Concomitant]
     Active Substance: CLOBAZAM
     Dosage: 30 MILLIGRAM, QD (DURING 2 YEARS)
     Route: 065
  31. CLOBAZAM [Concomitant]
     Active Substance: CLOBAZAM
     Dosage: 30 MILLIGRAM, QD (DURING 2 YEARS)
     Route: 065
  32. CLOBAZAM [Concomitant]
     Active Substance: CLOBAZAM
     Dosage: 30 MILLIGRAM, QD (DURING 2 YEARS)
  33. FOLIC ACID [Concomitant]
     Active Substance: FOLIC ACID
     Indication: Epilepsy
     Dosage: 5 MILLIGRAM, QD (DURING 6 YEARS)
  34. FOLIC ACID [Concomitant]
     Active Substance: FOLIC ACID
     Dosage: 5 MILLIGRAM, QD (DURING 6 YEARS)
     Route: 065
  35. FOLIC ACID [Concomitant]
     Active Substance: FOLIC ACID
     Dosage: 5 MILLIGRAM, QD (DURING 6 YEARS)
     Route: 065
  36. FOLIC ACID [Concomitant]
     Active Substance: FOLIC ACID
     Dosage: 5 MILLIGRAM, QD (DURING 6 YEARS)

REACTIONS (3)
  - Pancreatitis acute [Recovering/Resolving]
  - Drug reaction with eosinophilia and systemic symptoms [Unknown]
  - Behaviour disorder [Unknown]

NARRATIVE: CASE EVENT DATE: 20220414
